FAERS Safety Report 5092984-6 (Version None)
Quarter: 2006Q3

REPORT INFORMATION
  Report Type: 
  Country: None (occurrence: None)
  Receive Date: 20060830
  Receipt Date: 20060614
  Transmission Date: 20061208
  Serious: Yes (Hospitalization)
  Sender: FDA-Public Use
  Company Number: FR-GLAXOSMITHKLINE-B0427380A

PATIENT
  Age: 70 Year
  Sex: Male

DRUGS (5)
  1. AUGMENTIN [Suspect]
     Indication: LUNG ABSCESS
     Dosage: 1G THREE TIMES PER DAY
     Route: 048
     Dates: start: 20060124, end: 20060203
  2. GLUCOPHAGE [Concomitant]
     Route: 048
     Dates: start: 20060124
  3. CIFLOX [Concomitant]
     Indication: LUNG ABSCESS
     Route: 048
     Dates: start: 20060124, end: 20060208
  4. DAFALGAN [Concomitant]
     Route: 048
     Dates: start: 20060113, end: 20060202
  5. MEPROBAMATE [Concomitant]
     Route: 048
     Dates: start: 20060113

REACTIONS (5)
  - ALANINE AMINOTRANSFERASE INCREASED [None]
  - ASPARTATE AMINOTRANSFERASE INCREASED [None]
  - CHOLESTASIS [None]
  - HEPATIC ENZYME INCREASED [None]
  - HEPATOCELLULAR DAMAGE [None]
